FAERS Safety Report 25333861 (Version 1)
Quarter: 2025Q2

REPORT INFORMATION
  Report Type: Spontaneous
  Country: US (occurrence: US)
  Receive Date: 20250520
  Receipt Date: 20250520
  Transmission Date: 20250716
  Serious: No
  Sender: HIKMA
  Company Number: US-HIKMA PHARMACEUTICALS USA INC.-US-H14001-25-02145

PATIENT
  Age: 37 Year
  Sex: Male

DRUGS (2)
  1. TESTOSTERONE CYPIONATE [Suspect]
     Active Substance: TESTOSTERONE CYPIONATE
     Indication: Product used for unknown indication
     Dosage: 0.5 MILLILITER, WEEKLY, WEEK 3
     Route: 042
  2. TESTOSTERONE CYPIONATE [Suspect]
     Active Substance: TESTOSTERONE CYPIONATE
     Dosage: 2.5 MILLILITER, BIW, SEPARATED BY 2 DAYS (DOSE TUESDAY AND THURSDAY)
     Route: 058

REACTIONS (5)
  - Polycythaemia [Unknown]
  - Metabolic disorder [Unknown]
  - Skin odour abnormal [Unknown]
  - Taste disorder [Unknown]
  - Blood oestrogen increased [Unknown]
